FAERS Safety Report 21903941 (Version 1)
Quarter: 2023Q1

REPORT INFORMATION
  Report Type: Spontaneous
  Country: US (occurrence: US)
  Receive Date: 20230124
  Receipt Date: 20230124
  Transmission Date: 20230417
  Serious: Yes (Hospitalization, Other)
  Sender: FDA-Public Use
  Company Number: US-GLAXOSMITHKLINE-US2023008634

PATIENT

DRUGS (1)
  1. ANORO ELLIPTA [Suspect]
     Active Substance: UMECLIDINIUM BROMIDE\VILANTEROL TRIFENATATE
     Indication: Dyspnoea
     Dosage: UNK UNK, QD (62.5/25MCG )

REACTIONS (4)
  - Lung neoplasm malignant [Unknown]
  - Loss of consciousness [Unknown]
  - Dizziness [Unknown]
  - Thrombosis [Unknown]

NARRATIVE: CASE EVENT DATE: 20230118
